FAERS Safety Report 11526290 (Version 1)
Quarter: 2015Q3

REPORT INFORMATION
  Report Type: Spontaneous
  Country: US (occurrence: US)
  Receive Date: 20150903
  Receipt Date: 20150903
  Transmission Date: 20151125
  Serious: No
  Sender: FDA-Public Use
  Company Number: US-ELI_LILLY_AND_COMPANY-US201307007950

PATIENT
  Age: 81 Year
  Sex: Female

DRUGS (2)
  1. CYMBALTA [Suspect]
     Active Substance: DULOXETINE HYDROCHLORIDE
     Indication: ANXIETY
     Dosage: 60 MG, UNK
     Dates: start: 2010
  2. CYMBALTA [Suspect]
     Active Substance: DULOXETINE HYDROCHLORIDE
     Dosage: 20 MG, UNK

REACTIONS (7)
  - Insomnia [Unknown]
  - Amnesia [Unknown]
  - Lethargy [Unknown]
  - Decreased appetite [Unknown]
  - Depressed mood [Unknown]
  - Abnormal behaviour [Unknown]
  - Abdominal pain upper [Unknown]
